FAERS Safety Report 4390344-4 (Version None)
Quarter: 2004Q2

REPORT INFORMATION
  Report Type: 
  Country: None (occurrence: None)
  Receive Date: 20040630
  Receipt Date: 20040614
  Transmission Date: 20050107
  Serious: Yes (Hospitalization)
  Sender: FDA-Public Use
  Company Number: 2004-0007178

PATIENT
  Age: 60 Year
  Sex: Male

DRUGS (6)
  1. VIREAD [Suspect]
     Indication: HIV INFECTION
     Dosage: 300 MG, 1 IN 1 D, ORAL
     Route: 048
  2. EPIVIR [Suspect]
     Dosage: 150 MG, 2 IN 1 D, ORAL
     Route: 048
  3. KALETRA [Suspect]
     Dosage: 2 IN 1 D, ORAL
     Route: 048
  4. TAXOTERE [Suspect]
     Dosage: INTRAVENOUS (NOT OTHERWISE SPECIFIED)
     Route: 042
     Dates: start: 20040215
  5. CARBOPLATIN [Suspect]
     Dosage: INTRAVENOUS (NOT OTHERWISE SPECIFIED)
     Route: 042
     Dates: start: 20040115
  6. TAXOL [Concomitant]

REACTIONS (10)
  - ATROPHY OF TONGUE PAPILLAE [None]
  - DYSPHAGIA [None]
  - EXANTHEM [None]
  - HYPERKERATOSIS [None]
  - LEUKOCYTOSIS [None]
  - NEUROPATHY PERIPHERAL [None]
  - PRURITUS [None]
  - SKIN DESQUAMATION [None]
  - SKIN NECROSIS [None]
  - TOXIC SKIN ERUPTION [None]
